FAERS Safety Report 21523144 (Version 1)
Quarter: 2022Q4

REPORT INFORMATION
  Report Type: Report from Study
  Country: EG (occurrence: EG)
  Receive Date: 20221029
  Receipt Date: 20221029
  Transmission Date: 20230113
  Serious: Yes (Death, Hospitalization)
  Sender: FDA-Public Use
  Company Number: EG-JNJFOC-20220924507

PATIENT
  Sex: Male

DRUGS (1)
  1. IMBRUVICA [Suspect]
     Active Substance: IBRUTINIB
     Indication: Chronic lymphocytic leukaemia
     Dosage: 3 TAB/DAY
     Route: 048

REACTIONS (3)
  - Death [Fatal]
  - Thrombosis [Unknown]
  - Spinal cord haemorrhage [Unknown]

NARRATIVE: CASE EVENT DATE: 20220301
